FAERS Safety Report 6106421-3 (Version None)
Quarter: 2009Q1

REPORT INFORMATION
  Report Type: 
  Country: None (occurrence: None)
  Receive Date: 20090306
  Receipt Date: 20090220
  Transmission Date: 20090719
  Serious: Yes (Death, Life-Threatening, Hospitalization)
  Sender: FDA-Public Use
  Company Number: JP-GENENTECH-276379

PATIENT
  Sex: Female
  Weight: 35 kg

DRUGS (25)
  1. RITUXAN [Suspect]
     Indication: RHEUMATOID ARTHRITIS
     Dosage: 500 MG, 1/WEEK
     Route: 042
     Dates: start: 20080808, end: 20080829
  2. TOCILIZUMAB [Suspect]
     Indication: RHEUMATOID ARTHRITIS
     Dosage: 280 MG, Q4W
     Route: 042
     Dates: start: 20081211, end: 20081211
  3. IMMUNE GLOBULIN (HUMAN) [Suspect]
     Indication: BLOOD IMMUNOGLOBULIN G DECREASED
     Dosage: 5 G, QD
     Route: 050
     Dates: start: 20090106, end: 20090109
  4. REMICADE [Suspect]
     Indication: RHEUMATOID ARTHRITIS
     Dosage: 200 MG, UNK
     Route: 041
     Dates: start: 20070416, end: 20080206
  5. BACTRIM [Suspect]
     Indication: PNEUMOCYSTIS JIROVECI PNEUMONIA
     Dosage: UNK
     Route: 041
     Dates: start: 20090116
  6. ENBREL [Suspect]
     Indication: RHEUMATOID ARTHRITIS
     Dosage: 25 MG, 2/WEEK
     Route: 058
     Dates: start: 20051031, end: 20070413
  7. BENAMBAX [Suspect]
     Indication: PNEUMOCYSTIS JIROVECI PNEUMONIA
     Dosage: UNK
     Route: 050
     Dates: start: 20090114, end: 20090115
  8. PENTAZOCINE LACTATE [Concomitant]
     Indication: DRUG USE FOR UNKNOWN INDICATION
     Dosage: UNK
     Dates: start: 20081201
  9. ISCOTIN [Concomitant]
     Indication: DRUG USE FOR UNKNOWN INDICATION
     Dosage: UNK
     Dates: end: 20090113
  10. ARAVA [Concomitant]
     Indication: DRUG USE FOR UNKNOWN INDICATION
     Dosage: UNK
     Dates: end: 20081223
  11. PREDNISOLONE [Concomitant]
     Indication: DRUG USE FOR UNKNOWN INDICATION
  12. WARFARIN SODIUM [Concomitant]
     Indication: DRUG USE FOR UNKNOWN INDICATION
  13. ACTONEL [Concomitant]
     Indication: DRUG USE FOR UNKNOWN INDICATION
  14. VOLTAREN [Concomitant]
     Indication: DRUG USE FOR UNKNOWN INDICATION
  15. CLARITH [Concomitant]
     Indication: DRUG USE FOR UNKNOWN INDICATION
  16. PYRIDOXAL PHOSPHATE [Concomitant]
     Indication: DRUG USE FOR UNKNOWN INDICATION
  17. TAKEPRON [Concomitant]
     Indication: DRUG USE FOR UNKNOWN INDICATION
  18. MAGNESIUM OXIDE [Concomitant]
     Indication: DRUG USE FOR UNKNOWN INDICATION
  19. MIYA BM [Concomitant]
     Indication: DRUG USE FOR UNKNOWN INDICATION
     Dosage: UNK
  20. SIGMART [Concomitant]
     Indication: DRUG USE FOR UNKNOWN INDICATION
     Dosage: UNK
  21. MUCOSOLVAN [Concomitant]
     Indication: DRUG USE FOR UNKNOWN INDICATION
     Dosage: UNK
  22. ELCITONIN [Concomitant]
     Indication: DRUG USE FOR UNKNOWN INDICATION
     Dosage: UNK
     Dates: start: 20081201
  23. LEFLUNOMIDE [Concomitant]
     Indication: DRUG USE FOR UNKNOWN INDICATION
  24. STEROID NOS [Concomitant]
     Indication: DRUG USE FOR UNKNOWN INDICATION
  25. CLOSTRIDIUM BUTYRICUM [Concomitant]
     Indication: DRUG USE FOR UNKNOWN INDICATION

REACTIONS (1)
  - CARDIAC FAILURE [None]
